FAERS Safety Report 6901897-3 (Version None)
Quarter: 2010Q3

REPORT INFORMATION
  Report Type: 
  Country: None (occurrence: None)
  Receive Date: 20100803
  Receipt Date: 20080314
  Transmission Date: 20110219
  Serious: No
  Sender: FDA-Public Use
  Company Number: US-PFIZER INC-2008023597

PATIENT
  Sex: Female
  Weight: 76.8 kg

DRUGS (9)
  1. LYRICA [Suspect]
     Indication: FIBROMYALGIA
     Dates: start: 20080201
  2. LYRICA [Suspect]
     Indication: FACIAL NEURALGIA
  3. CONCERTA [Concomitant]
  4. KLONOPIN [Concomitant]
  5. LEXAPRO [Concomitant]
  6. SOMA [Concomitant]
  7. OXYCODONE [Concomitant]
  8. DEPO-PROVERA [Concomitant]
  9. ALBUTEROL [Concomitant]

REACTIONS (3)
  - DEPRESSION [None]
  - DRUG EFFECT DECREASED [None]
  - FACIAL PAIN [None]
